FAERS Safety Report 13006110 (Version 1)
Quarter: 2016Q4

REPORT INFORMATION
  Report Type: Spontaneous
  Country: US (occurrence: US)
  Receive Date: 20161205
  Receipt Date: 20161205
  Transmission Date: 20170207
  Serious: No
  Sender: FDA-Public Use
  Company Number: None

PATIENT
  Age: 67 Year
  Sex: Male

DRUGS (1)
  1. ENBREL [Suspect]
     Active Substance: ETANERCEPT
     Indication: RHEUMATOID ARTHRITIS
     Dosage: ONE PEN WEEKLY SC
     Route: 058
     Dates: start: 20160810

REACTIONS (3)
  - Drug ineffective [None]
  - Condition aggravated [None]
  - Therapy change [None]

NARRATIVE: CASE EVENT DATE: 201611
